FAERS Safety Report 23579531 (Version 1)
Quarter: 2024Q1

REPORT INFORMATION
  Report Type: Spontaneous
  Country: IE (occurrence: IE)
  Receive Date: 20240229
  Receipt Date: 20240229
  Transmission Date: 20240410
  Serious: Yes (Other)
  Sender: FDA-Public Use
  Company Number: IE-STRIDES ARCOLAB LIMITED-2024SP002361

PATIENT
  Age: 74 Year
  Sex: Female

DRUGS (1)
  1. METHOTREXATE [Suspect]
     Active Substance: METHOTREXATE
     Indication: Rheumatoid arthritis
     Dosage: 15 MILLIGRAM, ONCE WEEKLY
     Route: 048

REACTIONS (2)
  - Angiocentric lymphoma [Recovered/Resolved]
  - Adrenocortical carcinoma [Recovered/Resolved]
